FAERS Safety Report 7344801-9 (Version None)
Quarter: 2011Q1

REPORT INFORMATION
  Report Type: 
  Country: None (occurrence: None)
  Receive Date: 20110307
  Receipt Date: 20110307
  Transmission Date: 20110831
  Serious: No
  Sender: FDA-Public Use
  Company Number: None

PATIENT
  Age: 35 Year
  Sex: Male
  Weight: 84.9 kg

DRUGS (1)
  1. NORPRAMIN [Suspect]
     Indication: DEPRESSION
     Dosage: 50MG QHS PO
     Route: 048
     Dates: start: 20101012, end: 20101104

REACTIONS (1)
  - TACHYCARDIA [None]
